FAERS Safety Report 6652468-8 (Version None)
Quarter: 2010Q1

REPORT INFORMATION
  Report Type: 
  Country: None (occurrence: None)
  Receive Date: 20100325
  Receipt Date: 20100312
  Transmission Date: 20100710
  Serious: Yes (Other)
  Sender: FDA-Public Use
  Company Number: MX-GENENTECH-299541

PATIENT
  Age: 38 Year
  Sex: Female

DRUGS (2)
  1. XOLAIR [Suspect]
     Indication: ASTHMA
     Dosage: 300 MG, 2/WEEK
     Dates: start: 20100224
  2. XOLAIR [Suspect]
     Dosage: 150 MG, 2/WEEK
     Dates: start: 20100311

REACTIONS (1)
  - ANAPHYLACTIC REACTION [None]
